FAERS Safety Report 10457015 (Version 1)
Quarter: 2014Q3

REPORT INFORMATION
  Report Type: Spontaneous
  Country: US (occurrence: None)
  Receive Date: 20140826
  Receipt Date: 20140826
  Transmission Date: 20150326
  Serious: Yes (Life-Threatening)
  Sender: FDA-Public Use
  Company Number: 2037590

PATIENT
  Sex: Female

DRUGS (4)
  1. LEVOPHED [Suspect]
     Active Substance: NOREPINEPHRINE BITARTRATE
     Route: 041
     Dates: start: 20131004, end: 20131004
  2. LEVOPHED [Suspect]
     Active Substance: NOREPINEPHRINE BITARTRATE
     Dosage: 14:03
     Route: 041
     Dates: start: 20131004, end: 20131004
  3. LEVOPHED [Suspect]
     Active Substance: NOREPINEPHRINE BITARTRATE
     Dosage: 14:30
     Route: 041
     Dates: start: 20131004, end: 20131004
  4. DEXTROSE. [Concomitant]
     Active Substance: DEXTROSE

REACTIONS (1)
  - Drug effect decreased [None]

NARRATIVE: CASE EVENT DATE: 20131004
